FAERS Safety Report 6485128-7 (Version None)
Quarter: 2009Q4

REPORT INFORMATION
  Report Type: 
  Country: None (occurrence: None)
  Receive Date: 20091204
  Receipt Date: 20091123
  Transmission Date: 20100525
  Serious: Yes (Death, Hospitalization)
  Sender: FDA-Public Use
  Company Number: 91546

PATIENT
  Age: 36 Year
  Sex: Female

DRUGS (1)
  1. METHYLPREDNISOLONE [Suspect]
     Indication: RENAL AND PANCREAS TRANSPLANT
     Dosage: 20 MG/DAY

REACTIONS (11)
  - DEHYDRATION [None]
  - DIARRHOEA [None]
  - DYSPNOEA [None]
  - LEUKOPENIA [None]
  - LYMPHOCELE [None]
  - NAUSEA [None]
  - PETECHIAE [None]
  - PURPURA [None]
  - STRONGYLOIDIASIS [None]
  - SUDDEN DEATH [None]
  - VOMITING [None]
